FAERS Safety Report 13917244 (Version 2)
Quarter: 2018Q1

REPORT INFORMATION
  Report Type: Report from Study
  Country: US (occurrence: US)
  Receive Date: 20170829
  Receipt Date: 20180214
  Transmission Date: 20180508
  Serious: No
  Sender: FDA-Public Use
  Company Number: PHEH2017US027582

PATIENT
  Sex: Female

DRUGS (11)
  1. PAPAYA ENZYME [Concomitant]
     Indication: SUPPLEMENTATION THERAPY
     Route: 065
  2. OMEGA 3 [Concomitant]
     Active Substance: OMEGA-3 FATTY ACIDS
     Indication: SUPPLEMENTATION THERAPY
     Route: 065
  3. ONDASETRON [Concomitant]
     Active Substance: ONDANSETRON
     Indication: PRODUCT USED FOR UNKNOWN INDICATION
     Dosage: UNK UNK, PRN
     Route: 048
  4. VITAMIN D [Concomitant]
     Active Substance: CHOLECALCIFEROL
     Indication: SUPPLEMENTATION THERAPY
     Route: 065
  5. DIAZEPAM. [Concomitant]
     Active Substance: DIAZEPAM
     Indication: PRODUCT USED FOR UNKNOWN INDICATION
     Dosage: 0.5 DF, QHS
     Route: 048
  6. LEVOTHYROXINE. [Concomitant]
     Active Substance: LEVOTHYROXINE
     Indication: PRODUCT USED FOR UNKNOWN INDICATION
     Dosage: 0.15 MG, 5QD
     Route: 048
  7. VOTRIENT [Suspect]
     Active Substance: PAZOPANIB HYDROCHLORIDE
     Indication: NEOPLASM MALIGNANT
     Dosage: 4 DF, QD
     Route: 048
  8. VITAMIN C [Concomitant]
     Active Substance: ASCORBIC ACID
     Indication: SUPPLEMENTATION THERAPY
     Route: 065
  9. CALCIUM [Concomitant]
     Active Substance: CALCIUM
     Indication: SUPPLEMENTATION THERAPY
  10. THYMUS EXTRACT [Concomitant]
     Indication: SUPPLEMENTATION THERAPY
     Route: 065
  11. CANNABIS [Concomitant]
     Active Substance: CANNABIS SATIVA SUBSP. INDICA TOP
     Indication: SUPPLEMENTATION THERAPY
     Route: 065

REACTIONS (7)
  - Nausea [Unknown]
  - Fatigue [Unknown]
  - Diarrhoea [Unknown]
  - Osteoarthritis [Unknown]
  - Dysgeusia [Unknown]
  - Headache [Unknown]
  - Weight decreased [Unknown]
